FAERS Safety Report 9525968 (Version 1)
Quarter: 2013Q3

REPORT INFORMATION
  Report Type: Spontaneous
  Country: US (occurrence: None)
  Receive Date: 20130913
  Receipt Date: 20130913
  Transmission Date: 20140515
  Serious: No
  Sender: FDA-Public Use
  Company Number: None

PATIENT
  Age: 55 Year
  Sex: Female
  Weight: 25.32 kg

DRUGS (10)
  1. BEVACIZUMAB (RHUMAB VEGF) (704865) [Suspect]
  2. CARBOPLATIN, 900 MG [Suspect]
  3. TAXOL [Suspect]
  4. ALBUTER INHALER [Concomitant]
  5. ATROVENT NEBULIZER [Concomitant]
  6. MS CONTIN [Concomitant]
  7. TRAMADOL [Concomitant]
  8. COLACE [Concomitant]
  9. MUCINEX [Concomitant]
  10. OXYCODONE [Concomitant]

REACTIONS (1)
  - Haemoptysis [None]
